FAERS Safety Report 16839859 (Version 1)
Quarter: 2019Q3

REPORT INFORMATION
  Report Type: Spontaneous
  Country: US (occurrence: US)
  Receive Date: 20190923
  Receipt Date: 20190923
  Transmission Date: 20191005
  Serious: Yes (Hospitalization, Other)
  Sender: FDA-Public Use
  Company Number: US-PFIZER INC-2019409921

PATIENT
  Age: 48 Year
  Sex: Male

DRUGS (3)
  1. ELIQUIS [Suspect]
     Active Substance: APIXABAN
     Indication: PORTAL VEIN THROMBOSIS
     Dosage: UNAVAILABLE
     Route: 065
     Dates: start: 2018, end: 201907
  2. GEMCITABINE HYDROCHLORIDE. [Suspect]
     Active Substance: GEMCITABINE HYDROCHLORIDE
     Dosage: UNK UNK, CYCLIC
     Route: 065
     Dates: start: 20190111, end: 201907
  3. PACLITAXEL ALBUMIN [Suspect]
     Active Substance: PACLITAXEL
     Dosage: UNK UNK, CYCLIC
     Route: 065
     Dates: start: 20190111, end: 201907

REACTIONS (5)
  - Gastrointestinal haemorrhage [Unknown]
  - Intentional product use issue [Unknown]
  - Thrombocytopenia [Unknown]
  - Pancreatic mass [Unknown]
  - Diverticulum [Unknown]
